FAERS Safety Report 8539113-1 (Version None)
Quarter: 2012Q3

REPORT INFORMATION
  Report Type: 
  Country: None (occurrence: None)
  Receive Date: 20120726
  Receipt Date: 20120725
  Transmission Date: 20120928
  Serious: Yes (Death)
  Sender: FDA-Public Use
  Company Number: PHHY2012NZ038974

PATIENT
  Sex: Male

DRUGS (1)
  1. CLOZARIL [Suspect]
     Indication: SCHIZOPHRENIA
     Dosage: 350 MG, NOCTE
     Route: 048
     Dates: start: 20050120

REACTIONS (2)
  - ANTIPSYCHOTIC DRUG LEVEL INCREASED [None]
  - COMPLETED SUICIDE [None]
